FAERS Safety Report 24053021 (Version 2)
Quarter: 2024Q3

REPORT INFORMATION
  Report Type: Spontaneous
  Country: US (occurrence: US)
  Receive Date: 20240705
  Receipt Date: 20240729
  Transmission Date: 20241016
  Serious: No
  Sender: ROCHE
  Company Number: US-ROCHE-10000007398

PATIENT
  Age: 87 Year
  Sex: Female

DRUGS (1)
  1. VABYSMO [Suspect]
     Active Substance: FARICIMAB\FARICIMAB-SVOA
     Indication: Neovascular age-related macular degeneration
     Dosage: STRENGTH: 6MG/ 0.05ML?FREQUENCY: EVERY 4-5 WEEKS
     Route: 065
     Dates: start: 20231121

REACTIONS (4)
  - Eye pain [Recovered/Resolved]
  - Anterior chamber inflammation [Recovered/Resolved]
  - Iritis [Unknown]
  - Ocular hypertension [Recovered/Resolved]

NARRATIVE: CASE EVENT DATE: 20240530
